FAERS Safety Report 20535390 (Version 1)
Quarter: 2022Q1

REPORT INFORMATION
  Report Type: Report from Study
  Country: IS (occurrence: IS)
  Receive Date: 20220302
  Receipt Date: 20220302
  Transmission Date: 20220423
  Serious: Yes (Death, Other)
  Sender: FDA-Public Use
  Company Number: IS-JNJFOC-20210918979

PATIENT

DRUGS (1)
  1. CONCERTA [Suspect]
     Active Substance: METHYLPHENIDATE HYDROCHLORIDE
     Indication: Product used for unknown indication
     Route: 042

REACTIONS (11)
  - Drug abuse [Unknown]
  - Death [Fatal]
  - Suicide attempt [Unknown]
  - Intentional self-injury [Unknown]
  - Muscle spasms [Unknown]
  - Skin infection [Unknown]
  - Accident [Unknown]
  - Cardiac disorder [Unknown]
  - Product use issue [Unknown]
  - Off label use [Unknown]
  - Aggression [Unknown]
